FAERS Safety Report 20653184 (Version 2)
Quarter: 2022Q2

REPORT INFORMATION
  Report Type: Spontaneous
  Country: US (occurrence: US)
  Receive Date: 20220330
  Receipt Date: 20220504
  Transmission Date: 20220720
  Serious: Yes (Hospitalization)
  Sender: FDA-Public Use
  Company Number: US-UNITED THERAPEUTICS-UNT-2022-006359

PATIENT
  Age: 20 Year
  Sex: Female

DRUGS (9)
  1. REMODULIN [Suspect]
     Active Substance: TREPROSTINIL
     Indication: Pulmonary arterial hypertension
     Dosage: 0.035 ?G/KG, CONTINUING
     Route: 058
     Dates: start: 202203
  2. REMODULIN [Suspect]
     Active Substance: TREPROSTINIL
     Dosage: 0.054 ?G/KG, CONTINUING
     Route: 058
     Dates: start: 20220316
  3. REMODULIN [Suspect]
     Active Substance: TREPROSTINIL
     Dosage: 0.0536 ?G/KG, CONTINUING (RATE 0.046 ML/HR)
     Route: 058
     Dates: start: 20220318
  4. AMBRISENTAN [Concomitant]
     Active Substance: AMBRISENTAN
     Indication: Pulmonary hypertension
     Dosage: 10, UNK
     Route: 065
     Dates: start: 20190216, end: 201902
  5. AMBRISENTAN [Concomitant]
     Active Substance: AMBRISENTAN
     Dosage: 10 MG, QD
     Route: 065
     Dates: start: 20190219
  6. AMBRISENTAN [Concomitant]
     Active Substance: AMBRISENTAN
     Dosage: 10, UNK
     Route: 065
     Dates: start: 20200727
  7. AMBRISENTAN [Concomitant]
     Active Substance: AMBRISENTAN
     Dosage: 10, UNK
     Route: 065
     Dates: start: 202107
  8. VELETRI [Concomitant]
     Active Substance: EPOPROSTENOL
     Indication: Pulmonary arterial hypertension
     Dosage: 35 NG, Q1MINUTE
     Route: 065
     Dates: start: 20210302, end: 20220315
  9. ADCIRCA [Concomitant]
     Active Substance: TADALAFIL
     Indication: Product used for unknown indication
     Dosage: 40 MG, QD
     Route: 065

REACTIONS (1)
  - Dyspnoea [Unknown]

NARRATIVE: CASE EVENT DATE: 20220301
